FAERS Safety Report 9258691 (Version 1)
Quarter: 2013Q2

REPORT INFORMATION
  Report Type: Spontaneous
  Country: GR (occurrence: GR)
  Receive Date: 20130426
  Receipt Date: 20130426
  Transmission Date: 20140414
  Serious: Yes (Hospitalization)
  Sender: FDA-Public Use
  Company Number: GR-BAYER-2013-050390

PATIENT
  Age: 56 Year
  Sex: Male

DRUGS (1)
  1. ULTRAVIST [Suspect]
     Indication: COMPUTERISED TOMOGRAM ABDOMEN
     Dosage: DAILY DOSE 100 ML
     Route: 042
     Dates: start: 20130402, end: 20130402

REACTIONS (3)
  - Erythema [None]
  - Dyspnoea [Recovering/Resolving]
  - Dysphonia [Recovered/Resolved]
